FAERS Safety Report 23973148 (Version 1)
Quarter: 2024Q2

REPORT INFORMATION
  Report Type: Spontaneous
  Country: US (occurrence: US)
  Receive Date: 20240613
  Receipt Date: 20240613
  Transmission Date: 20240716
  Serious: Yes (Hospitalization)
  Sender: FDA-Public Use
  Company Number: US-TASMAN PHARMA, INC.-2024TSM00198

PATIENT
  Age: 34 Year
  Sex: Male

DRUGS (8)
  1. CLOZAPINE [Suspect]
     Active Substance: CLOZAPINE
     Indication: Bipolar disorder
     Dosage: 100 MG DAILY TO 450 MG DAILY, TITRATED OVER 3 MONTHS
  2. CLOZAPINE [Suspect]
     Active Substance: CLOZAPINE
     Dosage: 50 MG, 1X/DAY
  3. CLOZAPINE [Suspect]
     Active Substance: CLOZAPINE
     Dosage: GRADUAL TITRATION UP TO 50 MG, 3X/DAY (TITRATED IN 2 WEEKS)
  4. QUETIAPINE [Suspect]
     Active Substance: QUETIAPINE
     Indication: Bipolar disorder
     Dosage: 400 MG, 2X/DAY
  5. QUETIAPINE [Suspect]
     Active Substance: QUETIAPINE
     Dosage: 50 MG, 1X/DAY
  6. BENZTROPINE [Suspect]
     Active Substance: BENZTROPINE
     Indication: Extrapyramidal disorder
     Dosage: UNKNOWN INITIAL DOSING
  7. BENZTROPINE [Suspect]
     Active Substance: BENZTROPINE
     Dosage: 1 MG, 2X/DAY
  8. SENNA [Concomitant]
     Active Substance: SENNA LEAF\SENNOSIDES\SENNOSIDES A AND B
     Indication: Constipation

REACTIONS (4)
  - Intestinal obstruction [Recovered/Resolved]
  - Septic shock [Recovered/Resolved]
  - Clostridium difficile infection [Recovered/Resolved]
  - Drug interaction [Recovered/Resolved]
